FAERS Safety Report 6697756-4 (Version None)
Quarter: 2010Q2

REPORT INFORMATION
  Report Type: 
  Country: None (occurrence: None)
  Receive Date: 20100423
  Receipt Date: 20100419
  Transmission Date: 20101027
  Serious: Yes (Hospitalization)
  Sender: FDA-Public Use
  Company Number: 1000011793

PATIENT
  Age: 84 Year
  Sex: Female
  Weight: 48.8 kg

DRUGS (10)
  1. MEMANTINE HCL [Suspect]
     Indication: ABNORMAL BEHAVIOUR
     Dosage: 5 MG (5 MG, 1 IN 1 D), ORAL 10 MG (10 MG, 1 IN 1 D), ORAL
     Route: 048
     Dates: start: 20100122, end: 20100128
  2. MEMANTINE HCL [Suspect]
     Indication: DEMENTIA
     Dosage: 5 MG (5 MG, 1 IN 1 D), ORAL 10 MG (10 MG, 1 IN 1 D), ORAL
     Route: 048
     Dates: start: 20100122, end: 20100128
  3. MEMANTINE HCL [Suspect]
     Indication: ABNORMAL BEHAVIOUR
     Dosage: 5 MG (5 MG, 1 IN 1 D), ORAL 10 MG (10 MG, 1 IN 1 D), ORAL
     Route: 048
     Dates: start: 20100129
  4. MEMANTINE HCL [Suspect]
     Indication: DEMENTIA
     Dosage: 5 MG (5 MG, 1 IN 1 D), ORAL 10 MG (10 MG, 1 IN 1 D), ORAL
     Route: 048
     Dates: start: 20100129
  5. CARDENSIEL [Concomitant]
  6. TRIATEC [Concomitant]
  7. HEMIGOXINE [Concomitant]
  8. COUMADIN [Concomitant]
  9. DUPHALAC [Concomitant]
  10. CLINUTREN [Concomitant]

REACTIONS (3)
  - AUTOMATISM, COMMAND [None]
  - DELIRIUM [None]
  - HALLUCINATION, AUDITORY [None]
